FAERS Safety Report 10625121 (Version 1)
Quarter: 2014Q4

REPORT INFORMATION
  Report Type: Spontaneous
  Country: JP (occurrence: None)
  Receive Date: 20141202
  Receipt Date: 20141202
  Transmission Date: 20150529
  Serious: Yes (Hospitalization)
  Sender: FDA-Public Use
  Company Number: INT_00529_2014

PATIENT
  Age: 33 Year
  Sex: Female
  Weight: 78 kg

DRUGS (6)
  1. BLEOMYCIN [Suspect]
     Active Substance: BLEOMYCIN SULFATE
     Indication: OVARIAN GERM CELL TERATOMA STAGE I
     Dosage: 3 COURSES ON DAYS 2, 9, AND 16 (NOT OTHERWISE SPECIFIED)
     Route: 042
  2. ETOPOSIDE (ETOPOSIDE) [Suspect]
     Active Substance: ETOPOSIDE
     Indication: OVARIAN GERM CELL TERATOMA STAGE I
     Dosage: 3 COURSES ON DAYS 1-5 (NOT OTHERWISE SPECIFIED)
     Route: 042
  3. CISPLATIN (CISPLATIN) (HQ SPECIALTY) [Suspect]
     Active Substance: CISPLATIN
     Indication: OVARIAN GERM CELL TERATOMA STAGE I
     Dosage: 3 COURES ON DAYS 1-5 (NOT OTHERWISE SPECIFIED)
     Route: 042
  4. DEXAMETHASONE. [Concomitant]
     Active Substance: DEXAMETHASONE
  5. APREPITANT. [Concomitant]
     Active Substance: APREPITANT
  6. ONDANSETRON [Concomitant]
     Active Substance: ONDANSETRON

REACTIONS (4)
  - Cerebral infarction [None]
  - Pulmonary embolism [None]
  - Pelvic venous thrombosis [None]
  - Deep vein thrombosis [None]
